FAERS Safety Report 7985846-5 (Version None)
Quarter: 2011Q4

REPORT INFORMATION
  Report Type: 
  Country: None (occurrence: None)
  Receive Date: 20111216
  Receipt Date: 20111122
  Transmission Date: 20120403
  Serious: Yes (Other)
  Sender: FDA-Public Use
  Company Number: JP-PFIZER INC-2011275194

PATIENT
  Age: 69 Year

DRUGS (6)
  1. ETOPOSIDE [Concomitant]
     Indication: B-CELL LYMPHOMA
  2. ADRIAMYCIN PFS [Concomitant]
     Indication: B-CELL LYMPHOMA
  3. VINCRISTINE [Interacting]
     Indication: B-CELL LYMPHOMA
  4. FLUCONAZOLE [Suspect]
     Indication: ANTIFUNGAL TREATMENT
     Route: 048
  5. CYCLOPHOSPHAMIDE [Concomitant]
     Indication: B-CELL LYMPHOMA
  6. PREDNISOLONE [Concomitant]
     Indication: B-CELL LYMPHOMA

REACTIONS (2)
  - ILEUS PARALYTIC [None]
  - DRUG INTERACTION [None]
